FAERS Safety Report 7779687-1 (Version None)
Quarter: 2011Q3

REPORT INFORMATION
  Report Type: 
  Country: None (occurrence: None)
  Receive Date: 20110927
  Receipt Date: 20110918
  Transmission Date: 20111222
  Serious: Yes (Life-Threatening)
  Sender: FDA-Public Use
  Company Number: IL-NAPPMUNDI-GBR-2011-0008765

PATIENT
  Sex: Female

DRUGS (1)
  1. BUTRANS 5MG TRANSDERMAL PATCH [Suspect]
     Indication: BACK PAIN
     Dosage: 5 MCG, UNK
     Route: 062

REACTIONS (1)
  - SEPSIS [None]
